FAERS Safety Report 13898787 (Version 1)
Quarter: 2017Q3

REPORT INFORMATION
  Report Type: Spontaneous
  Country: US (occurrence: US)
  Receive Date: 20170824
  Receipt Date: 20170824
  Transmission Date: 20171127
  Serious: Yes (Hospitalization, Other)
  Sender: FDA-Public Use
  Company Number: US-GLAXOSMITHKLINE-US2017128489

PATIENT
  Age: 55 Year
  Sex: Female

DRUGS (2)
  1. TRANSDERM SCOP [Suspect]
     Active Substance: SCOPOLAMINE
     Indication: POSTOPERATIVE CARE
     Dosage: UNK
     Dates: start: 201706, end: 20170815
  2. TRANSDERM SCOP [Suspect]
     Active Substance: SCOPOLAMINE
     Indication: PREOPERATIVE CARE
     Dosage: UNK
     Dates: start: 2015

REACTIONS (15)
  - Nausea [Recovered/Resolved]
  - Application site burn [Not Recovered/Not Resolved]
  - Vision blurred [Recovered/Resolved]
  - Alopecia [Not Recovered/Not Resolved]
  - Cholecystectomy [Recovered/Resolved]
  - Application site reaction [Unknown]
  - Abdominal discomfort [Recovered/Resolved]
  - Weight decreased [Recovered/Resolved]
  - Malaise [Unknown]
  - Decreased appetite [Recovered/Resolved]
  - Blood test abnormal [Recovered/Resolved]
  - Discomfort [Unknown]
  - Withdrawal syndrome [Unknown]
  - Incorrect drug administration duration [Unknown]
  - Off label use [Unknown]

NARRATIVE: CASE EVENT DATE: 201706
